FAERS Safety Report 16857432 (Version 1)
Quarter: 2019Q3

REPORT INFORMATION
  Report Type: Spontaneous
  Country: US (occurrence: US)
  Receive Date: 20190926
  Receipt Date: 20190926
  Transmission Date: 20191005
  Serious: Yes (Other)
  Sender: FDA-Public Use
  Company Number: US-COLLEGIUM PHARMACEUTICAL, INC.-US-2019COL001106

PATIENT
  Age: 40 Year
  Sex: Male
  Weight: 63.49 kg

DRUGS (2)
  1. NUCYNTA [Suspect]
     Active Substance: TAPENTADOL HYDROCHLORIDE
     Indication: ABDOMINAL PAIN
     Dosage: 50 MG, TID
     Route: 048
     Dates: start: 201909
  2. NUCYNTA [Suspect]
     Active Substance: TAPENTADOL HYDROCHLORIDE
     Dosage: UNK
     Dates: start: 20190917

REACTIONS (14)
  - Drug withdrawal syndrome [Unknown]
  - Nausea [Recovered/Resolved]
  - Abdominal pain [Recovered/Resolved]
  - Anal incontinence [Recovered/Resolved]
  - Hot flush [Recovered/Resolved]
  - Depressed mood [Unknown]
  - Agitation [Recovered/Resolved]
  - Faeces discoloured [Recovered/Resolved]
  - Malaise [Unknown]
  - Pain [Unknown]
  - Feeling hot [Recovered/Resolved]
  - Defaecation urgency [Recovered/Resolved]
  - Dyspnoea [Recovered/Resolved]
  - Heart rate increased [Recovered/Resolved]

NARRATIVE: CASE EVENT DATE: 201909
